FAERS Safety Report 6180761-4 (Version None)
Quarter: 2009Q2

REPORT INFORMATION
  Report Type: 
  Country: None (occurrence: None)
  Receive Date: 20090506
  Receipt Date: 20081113
  Transmission Date: 20091009
  Serious: No
  Sender: FDA-Public Use
  Company Number: A0757277A

PATIENT
  Age: 21 Year
  Sex: Female

DRUGS (3)
  1. AMOXIL [Suspect]
     Indication: OTITIS MEDIA
     Route: 065
  2. LEVONORGESTREL [Suspect]
     Indication: CONTRACEPTION
     Dosage: .75MG TWICE PER DAY
     Route: 048
     Dates: start: 20081005, end: 20081006
  3. DICLOXACILLIN [Suspect]
     Indication: OTITIS MEDIA
     Dosage: 500MG FOUR TIMES PER DAY
     Route: 065

REACTIONS (7)
  - BACK PAIN [None]
  - DIZZINESS [None]
  - HEADACHE [None]
  - HIGH RISK SEXUAL BEHAVIOUR [None]
  - MENSTRUATION DELAYED [None]
  - NAUSEA [None]
  - OTITIS MEDIA [None]
